FAERS Safety Report 17846091 (Version 3)
Quarter: 2020Q4

REPORT INFORMATION
  Report Type: Spontaneous
  Country: US (occurrence: US)
  Receive Date: 20200601
  Receipt Date: 20201008
  Transmission Date: 20210113
  Serious: No
  Sender: FDA-Public Use
  Company Number: US-PFIZER INC-2020170745

PATIENT
  Age: 61 Year
  Sex: Female

DRUGS (2)
  1. XELJANZ [Suspect]
     Active Substance: TOFACITINIB CITRATE
     Indication: COLITIS ULCERATIVE
     Dosage: 10 MG, 2X/DAY
     Route: 048
     Dates: start: 20200315
  2. XELJANZ [Suspect]
     Active Substance: TOFACITINIB CITRATE
     Dosage: 5 MG, 2X/DAY
     Route: 048
     Dates: start: 20200315

REACTIONS (7)
  - Eye pain [Unknown]
  - Haemorrhoids [Unknown]
  - Nausea [Unknown]
  - Ocular hyperaemia [Recovered/Resolved]
  - Blood cholesterol increased [Unknown]
  - Vomiting [Unknown]
  - Weight increased [Unknown]

NARRATIVE: CASE EVENT DATE: 2020
